FAERS Safety Report 20126687 (Version 1)
Quarter: 2021Q4

REPORT INFORMATION
  Report Type: Spontaneous
  Country: US (occurrence: None)
  Receive Date: 20211128
  Receipt Date: 20211128
  Transmission Date: 20220303
  Serious: Yes (Life-Threatening, Hospitalization, Disabling, Other)
  Sender: FDA-Public Use
  Company Number: None

PATIENT
  Age: 8 Year
  Sex: Male
  Weight: 24.75 kg

DRUGS (4)
  1. MONTELUKAST [Suspect]
     Active Substance: MONTELUKAST SODIUM
     Indication: Hypersensitivity
     Dosage: FREQUENCY : AT BEDTIME;?
     Route: 048
     Dates: start: 20190320, end: 20210916
  2. MONTELUKAST-GUANFACINE [Concomitant]
  3. PROZAC [Concomitant]
     Active Substance: FLUOXETINE HYDROCHLORIDE
  4. MELATONIN [Concomitant]
     Active Substance: MELATONIN

REACTIONS (12)
  - Anxiety [None]
  - Fear [None]
  - Negative thoughts [None]
  - Decreased interest [None]
  - Hallucination, visual [None]
  - Social avoidant behaviour [None]
  - Mental disorder [None]
  - Suicidal ideation [None]
  - Impulsive behaviour [None]
  - Obsessive thoughts [None]
  - Defiant behaviour [None]
  - Impaired quality of life [None]

NARRATIVE: CASE EVENT DATE: 20210821
